FAERS Safety Report 15276723 (Version 1)
Quarter: 2018Q3

REPORT INFORMATION
  Report Type: Spontaneous
  Country: US (occurrence: US)
  Receive Date: 20180729
  Receipt Date: 20180729
  Transmission Date: 20181010
  Serious: Yes (Life-Threatening, Hospitalization)
  Sender: FDA-Public Use
  Company Number: None

PATIENT
  Age: 60 Year
  Sex: Female
  Weight: 83.7 kg

DRUGS (10)
  1. VALSARTAN. [Suspect]
     Active Substance: VALSARTAN
     Indication: BLOOD PRESSURE MEASUREMENT
     Dosage: ?          QUANTITY:1 TABLET(S);?
     Route: 048
  2. KCL [Concomitant]
     Active Substance: POTASSIUM CHLORIDE
  3. SPIRULUNA [Concomitant]
  4. MILK GRISTLE [Concomitant]
  5. TRIAMTEREN [Concomitant]
     Active Substance: TRIAMTERENE
  6. VIT D. [Concomitant]
  7. SIMVASTIN [Concomitant]
     Active Substance: SIMVASTATIN
  8. CARVEDILOL. [Concomitant]
     Active Substance: CARVEDILOL
  9. VITAMIN B COMPLEX [Concomitant]
     Active Substance: CYANOCOBALAMIN\DEXPANTHENOL\NIACINAMIDE\PYRIDOXINE HYDROCHLORIDE\RIBOFLAVIN 5^-PHOSPHATE SODIUM\THIAMINE HYDROCHLORIDE\VITAMIN B COMPLEX
  10. KELP [Concomitant]
     Active Substance: KELP

REACTIONS (2)
  - Breast cancer [None]
  - Product use issue [None]

NARRATIVE: CASE EVENT DATE: 20180717
